FAERS Safety Report 24531460 (Version 1)
Quarter: 2024Q4

REPORT INFORMATION
  Report Type: Report from Study
  Country: US (occurrence: US)
  Receive Date: 20241022
  Receipt Date: 20241022
  Transmission Date: 20250115
  Serious: No
  Sender: ROCHE
  Company Number: US-ROCHE-3486741

PATIENT
  Age: 12 Year
  Sex: Female

DRUGS (17)
  1. PULMOZYME [Suspect]
     Active Substance: DORNASE ALFA
     Indication: Pneumonia
     Route: 045
  2. PULMOZYME [Suspect]
     Active Substance: DORNASE ALFA
     Indication: Bronchitis chronic
  3. PULMOZYME [Suspect]
     Active Substance: DORNASE ALFA
     Indication: Bronchiectasis
  4. ALBUTEROL [Concomitant]
     Active Substance: ALBUTEROL
     Dosage: AS NEEDED, 1 AMPULE
  5. ALBUTEROL SULFATE [Concomitant]
     Active Substance: ALBUTEROL SULFATE
     Dosage: 4 TO 6 HOURS AS NEEDED
  6. AZITHROMYCIN [Concomitant]
     Active Substance: AZITHROMYCIN
     Route: 048
  7. AZITHROMYCIN [Concomitant]
     Active Substance: AZITHROMYCIN
     Route: 048
  8. BUDESONIDE\FORMOTEROL [Concomitant]
     Active Substance: BUDESONIDE\FORMOTEROL
     Dosage: 2 PUFF
  9. CEFDINIR [Concomitant]
     Active Substance: CEFDINIR
  10. FAMOTIDINE [Concomitant]
     Active Substance: FAMOTIDINE
     Route: 048
  11. FAMOTIDINE [Concomitant]
     Active Substance: FAMOTIDINE
     Dosage: FOR 30 DAYS
  12. IMIQUIMOD [Concomitant]
     Active Substance: IMIQUIMOD
  13. MONTELUKAST [Concomitant]
     Active Substance: MONTELUKAST
     Route: 048
  14. ONDANSETRON [Concomitant]
     Active Substance: ONDANSETRON
     Route: 048
  15. PREDNISONE [Concomitant]
     Active Substance: PREDNISONE
     Route: 048
  16. SODIUM CHLORIDE [Concomitant]
     Active Substance: SODIUM CHLORIDE
  17. SPIRIVA RESPIMAT [Concomitant]
     Active Substance: TIOTROPIUM BROMIDE
     Dosage: 2 PUFFS

REACTIONS (2)
  - Off label use [Unknown]
  - No adverse event [Unknown]
